FAERS Safety Report 6071931-4 (Version None)
Quarter: 2009Q1

REPORT INFORMATION
  Report Type: 
  Country: None (occurrence: None)
  Receive Date: 20090210
  Receipt Date: 20090204
  Transmission Date: 20090719
  Serious: Yes (Other)
  Sender: FDA-Public Use
  Company Number: US-AMGEN-US332030

PATIENT
  Sex: Male

DRUGS (12)
  1. NPLATE [Suspect]
     Indication: IDIOPATHIC THROMBOCYTOPENIC PURPURA
     Route: 058
     Dates: start: 20081111
  2. OMEPRAZOLE [Concomitant]
     Route: 065
  3. ZANTAC [Concomitant]
     Route: 065
  4. LISINOPRIL [Concomitant]
     Route: 065
  5. TRAMADOL HCL [Concomitant]
     Route: 065
  6. TERAZOSIN HCL [Concomitant]
     Route: 065
  7. LOVASTATIN [Concomitant]
     Route: 065
  8. CLARITIN [Concomitant]
     Route: 065
  9. MULTI-VITAMINS [Concomitant]
     Route: 065
  10. GLUCOSAMINE [Concomitant]
     Route: 065
  11. IRON [Concomitant]
     Route: 065
  12. DOCUSATE [Concomitant]
     Route: 065

REACTIONS (4)
  - ABDOMINAL PAIN UPPER [None]
  - HYPERSOMNIA [None]
  - PLATELET COUNT DECREASED [None]
  - URINE OUTPUT INCREASED [None]
